FAERS Safety Report 24035267 (Version 2)
Quarter: 2024Q3

REPORT INFORMATION
  Report Type: Spontaneous
  Country: ES (occurrence: ES)
  Receive Date: 20240701
  Receipt Date: 20240926
  Transmission Date: 20241016
  Serious: Yes (Other)
  Sender: ROCHE
  Company Number: ES-ROCHE-10000008078

PATIENT
  Age: 16 Year
  Sex: Female

DRUGS (14)
  1. CAPECITABINE [Suspect]
     Active Substance: CAPECITABINE
     Indication: Adrenocortical carcinoma
     Route: 065
  2. BEVACIZUMAB [Suspect]
     Active Substance: BEVACIZUMAB
     Indication: Adrenocortical carcinoma
     Route: 065
     Dates: start: 201301
  3. FILGRASTIM [Suspect]
     Active Substance: FILGRASTIM
     Indication: Adrenocortical carcinoma
     Route: 065
  4. CISPLATIN [Suspect]
     Active Substance: CISPLATIN
     Indication: Adrenocortical carcinoma
     Dosage: ON DAY 1
     Route: 065
     Dates: start: 201203
  5. DOXORUBICIN HYDROCHLORIDE [Suspect]
     Active Substance: DOXORUBICIN HYDROCHLORIDE
     Indication: Adrenocortical carcinoma
     Dosage: ON DAY 1
     Route: 065
     Dates: start: 201203
  6. GEMCITABINE [Suspect]
     Active Substance: GEMCITABINE
     Indication: Adrenocortical carcinoma
     Route: 065
  7. PEGFILGRASTIM [Concomitant]
     Active Substance: PEGFILGRASTIM
     Indication: Adrenocortical carcinoma
     Route: 065
  8. ACENOCOUMAROL [Concomitant]
     Active Substance: ACENOCOUMAROL
     Route: 065
  9. ERYTHROPOIETIN [Concomitant]
     Active Substance: ERYTHROPOIETIN
     Route: 065
  10. MEROPENEM [Concomitant]
     Active Substance: MEROPENEM
     Dosage: 1 G/8 H
  11. ACETAMINOPHEN [Concomitant]
     Active Substance: ACETAMINOPHEN
  12. OXYCODONE [Concomitant]
     Active Substance: OXYCODONE
  13. FENTANYL [Concomitant]
     Active Substance: FENTANYL\FENTANYL CITRATE
  14. PACLITAXEL [Concomitant]
     Active Substance: PACLITAXEL

REACTIONS (4)
  - Gastroenteritis [Unknown]
  - Pyrexia [Unknown]
  - Pancytopenia [Recovered/Resolved]
  - Off label use [Unknown]
